FAERS Safety Report 20453830 (Version 2)
Quarter: 2022Q1

REPORT INFORMATION
  Report Type: Spontaneous
  Country: US (occurrence: US)
  Receive Date: 20220210
  Receipt Date: 20220217
  Transmission Date: 20220423
  Serious: No
  Sender: FDA-Public Use
  Company Number: US-NOVARTISTESTPH-NVSC2022US028888

PATIENT
  Sex: Male

DRUGS (1)
  1. MEKINIST [Suspect]
     Active Substance: TRAMETINIB DIMETHYL SULFOXIDE
     Indication: Brain neoplasm malignant
     Dosage: 1 MG, QD
     Route: 048
     Dates: start: 20200310

REACTIONS (6)
  - Skin discolouration [Unknown]
  - Mouth ulceration [Unknown]
  - Oral pain [Unknown]
  - Oral mucosal erythema [Unknown]
  - Stomatitis [Unknown]
  - Product use in unapproved indication [Unknown]
